FAERS Safety Report 24615145 (Version 4)
Quarter: 2024Q4

REPORT INFORMATION
  Report Type: Spontaneous
  Country: GB (occurrence: GB)
  Receive Date: 20241113
  Receipt Date: 20241212
  Transmission Date: 20250115
  Serious: Yes (Hospitalization)
  Sender: MERCK
  Company Number: GB-009507513-2406GBR000659

PATIENT
  Age: 56 Year
  Sex: Male

DRUGS (4)
  1. KEYTRUDA [Suspect]
     Active Substance: PEMBROLIZUMAB
     Indication: Squamous cell carcinoma
     Dosage: 200 MG Q3W THEN Q6W (FORMALUATION REPORTES AS VIAL)
     Route: 042
     Dates: start: 202005, end: 202005
  2. KEYTRUDA [Suspect]
     Active Substance: PEMBROLIZUMAB
     Dosage: 200 MG Q3W THEN Q6W (FORMALUATION REPORTES AS VIAL)
     Route: 042
  3. KEYTRUDA [Suspect]
     Active Substance: PEMBROLIZUMAB
     Dosage: 200 MG Q3W THEN Q6W (FORMALUATION REPORTES AS VIAL)
     Route: 042
  4. KEYTRUDA [Suspect]
     Active Substance: PEMBROLIZUMAB
     Dosage: 400MG(100ML) AS AN INTRAVENOUS INFUSION OVER 30 MINUTES, AS DIRECTED
     Route: 042

REACTIONS (9)
  - Hospitalisation [Unknown]
  - Hospitalisation [Recovered/Resolved]
  - Malaise [Unknown]
  - Vascular access complication [Unknown]
  - Headache [Unknown]
  - Hypotension [Unknown]
  - Poor venous access [Unknown]
  - Accidental exposure to product [Unknown]
  - Exposure via skin contact [Unknown]

NARRATIVE: CASE EVENT DATE: 20240101
